FAERS Safety Report 9382915 (Version 1)
Quarter: 2013Q3

REPORT INFORMATION
  Report Type: Spontaneous
  Country: US (occurrence: US)
  Receive Date: 20130703
  Receipt Date: 20130703
  Transmission Date: 20140515
  Serious: Yes (Other)
  Sender: FDA-Public Use
  Company Number: US-ABBOTT-13P-163-1109446-00

PATIENT
  Sex: Male

DRUGS (1)
  1. SYNTHROID [Suspect]
     Indication: PRODUCT USED FOR UNKNOWN INDICATION

REACTIONS (6)
  - Throat tightness [Unknown]
  - Dyspnoea [Unknown]
  - Irritability [Unknown]
  - Muscle spasms [Unknown]
  - Alopecia [Unknown]
  - Insomnia [Unknown]
